FAERS Safety Report 4470405-1 (Version None)
Quarter: 2004Q3

REPORT INFORMATION
  Report Type: 
  Country: None (occurrence: None)
  Receive Date: 20040910
  Receipt Date: 20040812
  Transmission Date: 20050211
  Serious: No
  Sender: FDA-Public Use
  Company Number: 2004-00352

PATIENT
  Age: 74 Year
  Sex: Male
  Weight: 84.8 kg

DRUGS (1)
  1. VELCADE [Suspect]
     Indication: MANTLE CELL LYMPHOMA
     Dosage: 3.50 MG, 2/WEEK, INTRAVENOUS
     Route: 042
     Dates: start: 20040730, end: 20040806

REACTIONS (5)
  - ARTHRALGIA [None]
  - CONSTIPATION [None]
  - HEADACHE [None]
  - HYPOAESTHESIA [None]
  - PYREXIA [None]
